FAERS Safety Report 20131932 (Version 2)
Quarter: 2021Q4

REPORT INFORMATION
  Report Type: Spontaneous
  Country: DE (occurrence: DE)
  Receive Date: 20211130
  Receipt Date: 20211229
  Transmission Date: 20220303
  Serious: Yes (Other)
  Sender: FDA-Public Use
  Company Number: DE-NOVARTISPH-NVSC2021DE227613

PATIENT
  Age: 77 Year
  Sex: Female
  Weight: 65 kg

DRUGS (10)
  1. DEXAMETHASONE [Suspect]
     Active Substance: DEXAMETHASONE
     Indication: Plasma cell myeloma
     Dosage: 8 MG
     Route: 065
     Dates: start: 20180220
  2. DEXAMETHASONE [Suspect]
     Active Substance: DEXAMETHASONE
     Dosage: 28 MG
     Route: 065
     Dates: start: 20210107
  3. REVLIMID [Suspect]
     Active Substance: LENALIDOMIDE
     Indication: Plasma cell myeloma
     Dosage: 20 MG
     Route: 048
     Dates: start: 20180807
  4. REVLIMID [Suspect]
     Active Substance: LENALIDOMIDE
     Dosage: 20 MG
     Route: 048
     Dates: start: 20210520
  5. REVLIMID [Suspect]
     Active Substance: LENALIDOMIDE
     Dosage: 20 MG
     Route: 048
     Dates: start: 20210120
  6. ELOTUZUMAB [Suspect]
     Active Substance: ELOTUZUMAB
     Indication: Plasma cell myeloma
     Dosage: 719 MG
     Route: 065
     Dates: start: 20180220, end: 20180313
  7. ELOTUZUMAB [Suspect]
     Active Substance: ELOTUZUMAB
     Dosage: 570 MG
     Route: 065
     Dates: start: 20200417, end: 20200526
  8. ELOTUZUMAB [Suspect]
     Active Substance: ELOTUZUMAB
     Dosage: 650 MG
     Route: 065
     Dates: start: 20200428
  9. ELOTUZUMAB [Suspect]
     Active Substance: ELOTUZUMAB
     Dosage: 570 MG
     Route: 065
     Dates: start: 20200609, end: 20210511
  10. ELOTUZUMAB [Suspect]
     Active Substance: ELOTUZUMAB
     Dosage: 570 MG
     Route: 065
     Dates: start: 20210107, end: 20210511

REACTIONS (6)
  - Thrombocytopenia [Recovered/Resolved]
  - Thrombocytopenia [Recovered/Resolved]
  - Thrombocytopenia [Recovered/Resolved]
  - Thrombocytopenia [Unknown]
  - Leukopenia [Recovered/Resolved]
  - Leukopenia [Recovered/Resolved]

NARRATIVE: CASE EVENT DATE: 20200326
